FAERS Safety Report 4677159-4 (Version None)
Quarter: 2005Q2

REPORT INFORMATION
  Report Type: 
  Country: None (occurrence: None)
  Receive Date: 20050526
  Receipt Date: 20050512
  Transmission Date: 20051028
  Serious: Yes (Hospitalization)
  Sender: FDA-Public Use
  Company Number: DSA_26343_2005

PATIENT
  Age: 17 Year
  Sex: Female

DRUGS (1)
  1. TEVETEN [Suspect]
     Dosage: 12000 MG ONCE PO
     Route: 048

REACTIONS (6)
  - DIARRHOEA [None]
  - FALL [None]
  - FATIGUE [None]
  - INTENTIONAL MISUSE [None]
  - OVERDOSE [None]
  - SUICIDE ATTEMPT [None]
